FAERS Safety Report 4625905-8 (Version None)
Quarter: 2005Q1

REPORT INFORMATION
  Report Type: 
  Country: None (occurrence: None)
  Receive Date: 20050330
  Receipt Date: 20050314
  Transmission Date: 20050727
  Serious: Yes (Other)
  Sender: FDA-Public Use
  Company Number: GBS050316862

PATIENT
  Age: 36 Year
  Sex: Male

DRUGS (1)
  1. GEMZAR [Suspect]

REACTIONS (3)
  - DIALYSIS [None]
  - LUNG INJURY [None]
  - PULMONARY HAEMORRHAGE [None]
